FAERS Safety Report 6657658-6 (Version None)
Quarter: 2010Q1

REPORT INFORMATION
  Report Type: 
  Country: None (occurrence: None)
  Receive Date: 20100330
  Receipt Date: 20100324
  Transmission Date: 20100710
  Serious: Yes (Death)
  Sender: FDA-Public Use
  Company Number: GB-PURDUE-GBR-2010-0006327

PATIENT
  Sex: Female

DRUGS (1)
  1. MST CONTINUS SUSPENSION 20 MG [Suspect]
     Indication: DRUG USE FOR UNKNOWN INDICATION
     Dosage: 20 MG, UNK

REACTIONS (4)
  - DEATH [None]
  - INCORRECT DOSE ADMINISTERED [None]
  - PRODUCT LABEL ISSUE [None]
  - PRODUCT PACKAGING ISSUE [None]
